FAERS Safety Report 20827017 (Version 2)
Quarter: 2022Q2

REPORT INFORMATION
  Report Type: Spontaneous
  Country: JP (occurrence: JP)
  Receive Date: 20220513
  Receipt Date: 20220530
  Transmission Date: 20220720
  Serious: Yes (Hospitalization, Other)
  Sender: FDA-Public Use
  Company Number: JP-GLAXOSMITHKLINE-JP2022JPN077051

PATIENT

DRUGS (4)
  1. LAMICTAL [Suspect]
     Active Substance: LAMOTRIGINE
     Indication: Epilepsy
     Dosage: 150 MG/DAY
  2. LAMICTAL [Suspect]
     Active Substance: LAMOTRIGINE
     Dosage: 150 MG, BID (TWICE, 2?H APART)
  3. TOPIRAMATE [Suspect]
     Active Substance: TOPIRAMATE
     Indication: Epilepsy
     Dosage: 50 MG/DAY
  4. TOPIRAMATE [Suspect]
     Active Substance: TOPIRAMATE
     Dosage: 50 MG, BID (TWICE, 2?H APART)

REACTIONS (9)
  - Somnolence [Recovered/Resolved]
  - Vision blurred [Recovered/Resolved]
  - Vertigo [Recovered/Resolved]
  - Nausea [Recovered/Resolved]
  - Vomiting [Recovered/Resolved]
  - Loss of consciousness [Recovered/Resolved]
  - Seizure [Unknown]
  - Toxicity to various agents [Recovered/Resolved]
  - Wrong dose [Unknown]
